FAERS Safety Report 9169777 (Version 1)
Quarter: 2013Q1

REPORT INFORMATION
  Report Type: Spontaneous
  Country: US (occurrence: US)
  Receive Date: 20130318
  Receipt Date: 20130318
  Transmission Date: 20140127
  Serious: Yes (Other)
  Sender: FDA-Public Use
  Company Number: US-ELI_LILLY_AND_COMPANY-US201303001251

PATIENT
  Sex: Female

DRUGS (2)
  1. CYMBALTA [Suspect]
     Indication: MAJOR DEPRESSION
     Dosage: 30 MG, UNK
  2. CYMBALTA [Suspect]
     Dosage: 60 MG, UNK

REACTIONS (9)
  - Rhabdomyolysis [Unknown]
  - Blood creatine phosphokinase increased [Unknown]
  - Liver function test abnormal [Unknown]
  - Feeling abnormal [Unknown]
  - Agitation [Unknown]
  - Myalgia [Unknown]
  - Musculoskeletal stiffness [Unknown]
  - Insomnia related to another mental condition [Unknown]
  - Nausea [Unknown]
